FAERS Safety Report 21433309 (Version 1)
Quarter: 2022Q4

REPORT INFORMATION
  Report Type: Spontaneous
  Country: US (occurrence: US)
  Receive Date: 20221010
  Receipt Date: 20221010
  Transmission Date: 20230113
  Serious: Yes (Other)
  Sender: FDA-Public Use
  Company Number: US-ENDO PHARMACEUTICALS INC-2022-005747

PATIENT
  Age: 53 Year
  Sex: Female

DRUGS (12)
  1. DULOXETINE HYDROCHLORIDE [Suspect]
     Active Substance: DULOXETINE HYDROCHLORIDE
     Indication: Generalised anxiety disorder
     Dosage: 60 MG, DAILY
     Route: 065
  2. DULOXETINE HYDROCHLORIDE [Suspect]
     Active Substance: DULOXETINE HYDROCHLORIDE
     Dosage: 90 MG, DAILY
     Route: 065
  3. DULOXETINE HYDROCHLORIDE [Suspect]
     Active Substance: DULOXETINE HYDROCHLORIDE
     Dosage: 60 MG, DAILY (DOSE WAS SUBSEQUENTLY DECREASED AND WAS MAINTAINED FOR ABOUT 1 MONTH)
     Route: 065
  4. DULOXETINE HYDROCHLORIDE [Suspect]
     Active Substance: DULOXETINE HYDROCHLORIDE
     Dosage: UNK UNKNOWN, UNK (DOSE TAPERED OVER TWO WEEKS)
     Route: 065
  5. PREGABALIN [Suspect]
     Active Substance: PREGABALIN
     Indication: Anxiety
     Dosage: 75 MG, BID
     Route: 065
  6. OMEPRAZOLE                         /00661202/ [Concomitant]
     Indication: Product used for unknown indication
     Dosage: 40 MG, DAILY
     Route: 065
  7. FLUTICASONE                        /00972202/ [Concomitant]
     Indication: Product used for unknown indication
     Dosage: 50 ?G, OD (TWO SPRAYS IN EACH NOSTRIL)
     Route: 045
  8. LORATADINE [Concomitant]
     Active Substance: LORATADINE
     Indication: Product used for unknown indication
     Dosage: 10 MG, DAILY
     Route: 065
  9. ASPIRIN [Concomitant]
     Active Substance: ASPIRIN
     Indication: Product used for unknown indication
     Dosage: 81 MG, DAILY
     Route: 065
  10. PRAVASTATIN [Concomitant]
     Active Substance: PRAVASTATIN
     Indication: Product used for unknown indication
     Dosage: 20 MG, DAILY
     Route: 065
  11. CYCLOBENZAPRINE                    /00428402/ [Concomitant]
     Indication: Product used for unknown indication
     Dosage: 10 MG, DAILY AS NEEDED (USED ABOUT ONCE MONTHLY)
  12. PROPRANOLOL                        /00030002/ [Concomitant]
     Indication: Product used for unknown indication
     Dosage: 160 MG, DAILY
     Route: 065

REACTIONS (1)
  - Priapism [Recovered/Resolved]
